FAERS Safety Report 7405013-3 (Version None)
Quarter: 2011Q1

REPORT INFORMATION
  Report Type: 
  Country: None (occurrence: None)
  Receive Date: 20110330
  Receipt Date: 20110319
  Transmission Date: 20110831
  Serious: Yes (Death)
  Sender: FDA-Public Use
  Company Number: 814885

PATIENT
  Age: 57 Year
  Sex: Male
  Weight: 100 kg

DRUGS (5)
  1. VERSED [Suspect]
     Indication: ALCOHOL WITHDRAWAL SYNDROME
     Dosage: PRN Q 1-2 HOURS INTRAVENOUS (NOT OTHERWISE SPECIFIED)
     Route: 042
  2. HALDOL [Suspect]
     Indication: ALCOHOL WITHDRAWAL SYNDROME
     Dosage: PRN Q 1-2 HOURS INTRAVENOUS (NOT OTHERWISE SPECIFIED)
     Route: 042
  3. FENTANYL CITRATE [Suspect]
     Indication: ALCOHOL WITHDRAWAL SYNDROME
     Dosage: PRN Q 1-2 HOURS INTRAVENOUS (NOT OTHERWISE SPECIFIED) ; PRN INTRAVENOUS (NOT OTHERWISE SPECIFIED)
     Route: 042
  4. PRECEDEX [Suspect]
     Indication: ALCOHOL WITHDRAWAL SYNDROME
     Dosage: INTRAVENOUS DRIP
     Route: 041
     Dates: start: 20110111
  5. ATIVAN [Suspect]
     Indication: ALCOHOL WITHDRAWAL SYNDROME
     Dosage: PRN Q 1-2 HOURS INTRAVENOUS (NOT OTHERWISE SPECIFIED)
     Route: 042

REACTIONS (4)
  - NEUROLOGICAL DECOMPENSATION [None]
  - DRUG INEFFECTIVE [None]
  - RESPIRATORY ARREST [None]
  - CARDIAC ARREST [None]
